FAERS Safety Report 9878714 (Version 2)
Quarter: 2014Q1

REPORT INFORMATION
  Report Type: Spontaneous
  Country: US (occurrence: US)
  Receive Date: 20140206
  Receipt Date: 20140206
  Transmission Date: 20141002
  Serious: No
  Sender: FDA-Public Use
  Company Number: US-ALLERGAN-1308493US

PATIENT
  Age: 83 Year
  Sex: Female

DRUGS (8)
  1. BOTOX [Suspect]
     Indication: TORTICOLLIS
     Dosage: UNK UNK, SINGLE
     Route: 030
  2. SYNTHROID [Concomitant]
     Indication: HYPOTHYROIDISM
     Dosage: UNK
  3. ZETIA [Concomitant]
     Indication: HYPERCHOLESTEROLAEMIA
     Dosage: UNK
  4. ACTONEL [Concomitant]
     Indication: OSTEOPENIA
     Dosage: UNK
  5. CELEBREX [Concomitant]
     Indication: MUSCULOSKELETAL PAIN
     Dosage: UNK
  6. MVI [Concomitant]
     Indication: SUPPLEMENTATION THERAPY
     Dosage: UNK
  7. VITAMIN D                          /00107901/ [Concomitant]
     Indication: SUPPLEMENTATION THERAPY
     Dosage: UNK
  8. CALCIUM [Concomitant]
     Indication: SUPPLEMENTATION THERAPY
     Dosage: UNK

REACTIONS (2)
  - Photopsia [Unknown]
  - Vision blurred [Not Recovered/Not Resolved]
